FAERS Safety Report 8409075-6 (Version None)
Quarter: 2012Q2

REPORT INFORMATION
  Report Type: 
  Country: None (occurrence: None)
  Receive Date: 20120604
  Receipt Date: 20120405
  Transmission Date: 20120825
  Serious: No
  Sender: FDA-Public Use
  Company Number: US-NOVEN-12US004427

PATIENT
  Age: 14 Year
  Sex: Male
  Weight: 92.971 kg

DRUGS (2)
  1. DAYTRANA [Suspect]
     Route: 062
  2. DAYTRANA [Suspect]
     Indication: ATTENTION DEFICIT/HYPERACTIVITY DISORDER
     Dosage: 2 30 MG PATCHES, QD
     Route: 062
     Dates: start: 20070101

REACTIONS (5)
  - WRONG TECHNIQUE IN DRUG USAGE PROCESS [None]
  - PRODUCT QUALITY ISSUE [None]
  - DRUG INEFFECTIVE [None]
  - DRUG PRESCRIBING ERROR [None]
  - INCORRECT STORAGE OF DRUG [None]
